FAERS Safety Report 8869076 (Version 2)
Quarter: 2013Q1

REPORT INFORMATION
  Report Type: Spontaneous
  Country: JP (occurrence: None)
  Receive Date: 20121024
  Receipt Date: 20121106
  Transmission Date: 20140127
  Serious: Yes (Hospitalization)
  Sender: FDA-Public Use
  Company Number: DSJ-2012-19073

PATIENT
  Age: 65 Year
  Sex: Male

DRUGS (6)
  1. OLMETEC [Suspect]
     Indication: HYPERTENSION
     Route: 048
     Dates: start: 20100921, end: 20100928
  2. PLETAAL (CILOSTAZOL) (CILOSTAZOL) [Concomitant]
  3. FLUITRAN (TRIHCHLORMETHIAZIDE) (TRICHLORMETHAIZIDE) [Concomitant]
  4. ADALAT (NIFEDIPINE) (NIFEDIPINE) [Concomitant]
  5. SELARA (EPLERENONE) (EPLERENONE) [Concomitant]
  6. SELOKEN (METOPROLOL TARTRATE) (METOPROLOL TARTRATE) [Concomitant]

REACTIONS (6)
  - Blood potassium decreased [None]
  - Blood creatine phosphokinase increased [None]
  - Hepatic function abnormal [None]
  - Alanine aminotransferase increased [None]
  - Aspartate aminotransferase increased [None]
  - Blood lactate dehydrogenase increased [None]
